FAERS Safety Report 8519607-5 (Version None)
Quarter: 2012Q3

REPORT INFORMATION
  Report Type: 
  Country: None (occurrence: None)
  Receive Date: 20120718
  Receipt Date: 20120717
  Transmission Date: 20120928
  Serious: Yes (Hospitalization)
  Sender: FDA-Public Use
  Company Number: CHPA2011US10780

PATIENT
  Age: 77 Year
  Sex: Female

DRUGS (3)
  1. VOLTAREN [Suspect]
     Indication: MENISCUS LESION
     Dosage: 2 G, 3-4 TIMES DAILY
     Route: 061
  2. VOLTAREN [Suspect]
     Dosage: 4 G, QID
     Route: 061
  3. ANALGESICS [Concomitant]
     Indication: PAIN

REACTIONS (5)
  - DRUG ADMINISTERED AT INAPPROPRIATE SITE [None]
  - JOINT SWELLING [None]
  - ARTHRALGIA [None]
  - PNEUMONIA [None]
  - DRUG INEFFECTIVE FOR UNAPPROVED INDICATION [None]
